FAERS Safety Report 13019015 (Version 2)
Quarter: 2017Q1

REPORT INFORMATION
  Report Type: Spontaneous
  Country: US (occurrence: US)
  Receive Date: 20161212
  Receipt Date: 20170117
  Transmission Date: 20170428
  Serious: Yes (Hospitalization)
  Sender: FDA-Public Use
  Company Number: US-BAYER-2016-226444

PATIENT
  Age: 30 Year
  Sex: Female

DRUGS (1)
  1. MIRENA [Suspect]
     Active Substance: LEVONORGESTREL
     Dosage: 20 MCG/24HR, CONT
     Route: 015
     Dates: start: 201211, end: 201603

REACTIONS (5)
  - Device issue [None]
  - Uterine perforation [None]
  - Abdominal pain lower [None]
  - Injury [None]
  - Ovarian cyst [None]

NARRATIVE: CASE EVENT DATE: 20140718
